FAERS Safety Report 18682135 (Version 1)
Quarter: 2020Q4

REPORT INFORMATION
  Report Type: Report from Study
  Country: US (occurrence: US)
  Receive Date: 20201230
  Receipt Date: 20201230
  Transmission Date: 20210114
  Serious: Yes (Death, Other)
  Sender: FDA-Public Use
  Company Number: US-ACADIA PHARMACEUTICALS INC.-ACA-2020-PIM-003936

PATIENT
  Age: 69 Year
  Sex: Male

DRUGS (13)
  1. CARBIDOPA/LEVODOPA [Concomitant]
     Active Substance: CARBIDOPA\LEVODOPA
  2. LORAZEPAM. [Concomitant]
     Active Substance: LORAZEPAM
  3. NUPLAZID [Suspect]
     Active Substance: PIMAVANSERIN TARTRATE
     Indication: PARKINSON^S DISEASE PSYCHOSIS
     Dosage: 34 MILLIGRAM, QD
     Route: 048
     Dates: start: 20190926, end: 20201128
  4. ENTACAPONE. [Concomitant]
     Active Substance: ENTACAPONE
  5. NUPLAZID [Suspect]
     Active Substance: PIMAVANSERIN TARTRATE
     Indication: HALLUCINATION
  6. HUMULIN 70/30 [Concomitant]
     Active Substance: INSULIN HUMAN
  7. LINZESS [Concomitant]
     Active Substance: LINACLOTIDE
  8. HYOSCYAMINE. [Concomitant]
     Active Substance: HYOSCYAMINE
  9. MUPIROCIN. [Concomitant]
     Active Substance: MUPIROCIN
  10. TAMSULOSIN [Concomitant]
     Active Substance: TAMSULOSIN
  11. ASPIRIN [ACETYLSALICYLIC ACID] [Concomitant]
     Active Substance: ASPIRIN
  12. SIMVASTATIN. [Concomitant]
     Active Substance: SIMVASTATIN
  13. TRIHEXYPHENIDYL [TRIHEXYPHENIDYL HYDROCHLORIDE] [Concomitant]

REACTIONS (1)
  - Death [Recovered/Resolved]

NARRATIVE: CASE EVENT DATE: 20201129
